FAERS Safety Report 9002261 (Version 1)
Quarter: 2012Q4

REPORT INFORMATION
  Report Type: Spontaneous
  Country: US (occurrence: None)
  Receive Date: 20121001
  Receipt Date: 20121001
  Transmission Date: 20130627
  Serious: Yes (Life-Threatening)
  Sender: FDA-Public Use
  Company Number: 54973 AE1032

PATIENT
  Sex: Female

DRUGS (1)
  1. HOMEOPATHICS [Suspect]
     Indication: COLD SYMPTOMS
     Dosage: one dose once

REACTIONS (1)
  - Convulsion [None]
